FAERS Safety Report 9330694 (Version 2)
Quarter: 2013Q3

REPORT INFORMATION
  Report Type: Report from Study
  Country: FR (occurrence: FR)
  Receive Date: 20130605
  Receipt Date: 20130710
  Transmission Date: 20140515
  Serious: Yes (Other)
  Sender: FDA-Public Use
  Company Number: FR-JNJFOC-20130522219

PATIENT
  Age: 16 Year
  Sex: Male
  Weight: 70 kg

DRUGS (3)
  1. REMICADE [Suspect]
     Indication: CROHN^S DISEASE
     Route: 042
     Dates: start: 20091029, end: 20101119
  2. CIMZIA [Concomitant]
     Indication: CROHN^S DISEASE
     Route: 065
     Dates: start: 20111209
  3. PREDNISONE [Concomitant]
     Route: 065

REACTIONS (1)
  - Cholangitis sclerosing [Not Recovered/Not Resolved]
